FAERS Safety Report 6470721 (Version 29)
Quarter: 2014Q1

REPORT INFORMATION
  Report Type: Spontaneous
  Country: US (occurrence: US)
  Receive Date: 20071119
  Receipt Date: 20140321
  Transmission Date: 20141002
  Serious: Yes (Death, Hospitalization, Other)
  Sender: FDA-Public Use
  Company Number: PHEH2007US14841

PATIENT
  Age: 68 Year
  Sex: Female
  Weight: 81.63 kg

DRUGS (49)
  1. AREDIA [Suspect]
     Indication: HYPERCALCAEMIA OF MALIGNANCY
     Dosage: 90 MG
     Route: 042
     Dates: start: 20010727
  2. ZOMETA [Suspect]
     Route: 041
  3. CHEMOTHERAPEUTICS NOS [Concomitant]
  4. RADIATION THERAPY [Concomitant]
  5. COUMADIN ^BOOTS^ [Concomitant]
     Dosage: 1 MG
  6. PRILOSEC [Concomitant]
     Dosage: 20 MG, QD
  7. PENICILLIN ^GRUNENTHAL^ [Concomitant]
     Dosage: 500 MG, QD
  8. CLINDAMYCIN [Concomitant]
     Dosage: 300 MG, TID
  9. MULTIVITAMIN ^LAPPE^ [Concomitant]
  10. CALCIUM [Concomitant]
  11. VITAMIN D [Concomitant]
  12. VITAMIN B12 [Concomitant]
  13. VITAMIN C [Concomitant]
  14. HYDROCHLOROTHIAZIDE [Concomitant]
  15. SIMVASTATIN [Concomitant]
     Dosage: 40 MG, QD
  16. PROCRIT                            /00909301/ [Concomitant]
  17. HERCEPTIN ^GENENTECH^ [Concomitant]
     Dosage: 550 MG
     Route: 041
     Dates: start: 200108, end: 200112
  18. HERCEPTIN ^GENENTECH^ [Concomitant]
     Dosage: 550 MG, UNK
     Dates: start: 200306
  19. TAXOTERE [Concomitant]
     Dates: start: 200108, end: 200112
  20. CARBOPLATIN [Concomitant]
     Dates: start: 200306
  21. DILAUDID [Concomitant]
  22. DECADRON                                /NET/ [Concomitant]
  23. ZANTAC [Concomitant]
  24. DURAGESIC [Concomitant]
     Route: 062
     Dates: start: 20010727
  25. PREDNISONE [Concomitant]
     Route: 048
  26. PREMARIN TABLET [Concomitant]
     Route: 048
     Dates: start: 1998
  27. KEFLEX                                  /UNK/ [Concomitant]
     Dosage: 500 MG
  28. TRIMOX [Concomitant]
     Dosage: 500 MG
  29. NAVELBINE ^ASTA MEDICA^ [Concomitant]
     Dates: start: 200204, end: 200210
  30. METHYLIN [Concomitant]
     Dosage: 5 MG
     Route: 048
     Dates: start: 20040510
  31. MARINOL [Concomitant]
     Dosage: 5 MG
     Dates: start: 20040510
  32. ATIVAN [Concomitant]
     Dosage: 1 MG
     Route: 048
     Dates: start: 20040525
  33. NITROQUICK [Concomitant]
     Dosage: 0.4 MG, PRN
     Route: 060
     Dates: start: 20051015
  34. ECONAZOLE [Concomitant]
     Dosage: 1 %
     Route: 061
     Dates: start: 20050203
  35. Z-PAK [Concomitant]
     Dosage: 250 MG, QD
     Route: 048
     Dates: start: 20051118
  36. LEVAQUIN [Concomitant]
     Dosage: 500 MG, QD
     Route: 048
     Dates: start: 20051209
  37. TRIAMTERENE AND HYDROCHLOROTHIAZID ^HARRIS^ [Concomitant]
  38. LOVASTATIN [Concomitant]
  39. NORVASC                                 /DEN/ [Concomitant]
     Dosage: 5 MG
  40. MS CONTIN [Concomitant]
  41. RITALIN [Concomitant]
  42. LASIX [Concomitant]
     Dosage: 40 MG
  43. POTASSIUM CHLORIDE [Concomitant]
  44. ASPIRIN ^BAYER^ [Concomitant]
     Dosage: 81 MG, QD
  45. TOPROL XL [Concomitant]
  46. WELLBUTRIN [Concomitant]
  47. PHENYTOIN [Concomitant]
  48. ZOLOFT (SERTRALINE HYDROCHLORIDE) [Concomitant]
  49. LOVENOX [Concomitant]

REACTIONS (124)
  - Metastases to central nervous system [Fatal]
  - Brain neoplasm [Fatal]
  - Breast cancer metastatic [Fatal]
  - Deep vein thrombosis [Unknown]
  - Peripheral artery stenosis [Unknown]
  - Fall [Unknown]
  - Asthenia [Unknown]
  - Osteonecrosis of jaw [Unknown]
  - Pain [Unknown]
  - Tooth abscess [Unknown]
  - Infection [Unknown]
  - Osteomyelitis [Unknown]
  - Deformity [Unknown]
  - Bone disorder [Unknown]
  - Mucosal haemorrhage [Unknown]
  - Osteitis [Unknown]
  - Swelling [Unknown]
  - Gingival bleeding [Unknown]
  - Pain in jaw [Unknown]
  - Actinomycosis [Unknown]
  - Bone loss [Unknown]
  - Mouth haemorrhage [Unknown]
  - Gingival ulceration [Unknown]
  - Ventricular hypertrophy [Unknown]
  - Aortic stenosis [Unknown]
  - Carotid bruit [Unknown]
  - Left atrial dilatation [Unknown]
  - Gastrointestinal haemorrhage [Unknown]
  - Anaemia [Unknown]
  - Depression [Unknown]
  - Convulsion [Unknown]
  - Arteriosclerosis [Unknown]
  - Metastases to lung [Unknown]
  - Rib fracture [Recovered/Resolved]
  - Respiratory distress [Unknown]
  - Haemoptysis [Unknown]
  - Joint injury [Unknown]
  - Chronic sinusitis [Unknown]
  - Sinus polyp [Unknown]
  - Dementia [Unknown]
  - Chronic obstructive pulmonary disease [Unknown]
  - Proctalgia [Unknown]
  - Nausea [Unknown]
  - Decreased appetite [Unknown]
  - Vomiting [Unknown]
  - Weight decreased [Unknown]
  - Metastases to bone [Unknown]
  - Primary sequestrum [Unknown]
  - Fungal infection [Unknown]
  - Lumbar spinal stenosis [Unknown]
  - Back pain [Unknown]
  - Neck pain [Unknown]
  - Pain in extremity [Unknown]
  - Radiculopathy [Unknown]
  - Spondylolisthesis [Unknown]
  - Lumbar vertebral fracture [Unknown]
  - Intervertebral disc protrusion [Unknown]
  - Spinal compression fracture [Unknown]
  - Cervical spinal stenosis [Unknown]
  - Vertebral osteophyte [Unknown]
  - Pancytopenia [Unknown]
  - Pulmonary embolism [Unknown]
  - Presbyoesophagus [Unknown]
  - Oesophageal spasm [Unknown]
  - Dysphagia [Unknown]
  - Activated partial thromboplastin time prolonged [Unknown]
  - Neoplasm recurrence [Unknown]
  - Abdominal pain [Unknown]
  - Hypertension [Unknown]
  - Sinusitis fungal [Unknown]
  - Sinus disorder [Unknown]
  - Contusion [Unknown]
  - Angina pectoris [Unknown]
  - Mitral valve incompetence [Unknown]
  - Radiation injury [Unknown]
  - Cerebral ischaemia [Unknown]
  - Cerumen impaction [Unknown]
  - Nervous system disorder [Unknown]
  - Headache [Unknown]
  - Groin pain [Recovered/Resolved]
  - Fungal skin infection [Unknown]
  - Bedridden [Unknown]
  - Memory impairment [Unknown]
  - Lethargy [Unknown]
  - Breath sounds abnormal [Unknown]
  - Disorientation [Unknown]
  - Urinary incontinence [Unknown]
  - Faecal incontinence [Unknown]
  - Urinary retention [Unknown]
  - Diverticulitis [Unknown]
  - Activities of daily living impaired [Unknown]
  - Depressed level of consciousness [Unknown]
  - Speech disorder [Unknown]
  - Disturbance in attention [Unknown]
  - Arterial occlusive disease [Unknown]
  - Nodule [Unknown]
  - Metastases to abdominal cavity [Unknown]
  - Polyarthritis [Unknown]
  - Metastases to pelvis [Unknown]
  - Chest pain [Unknown]
  - Intervertebral disc space narrowing [Unknown]
  - Facial pain [Unknown]
  - Brain oedema [Unknown]
  - Bone pain [Unknown]
  - Cardiac murmur [Unknown]
  - Odynophagia [Unknown]
  - Lymphadenopathy [Unknown]
  - Aortic arteriosclerosis [Unknown]
  - Aortic calcification [Unknown]
  - Nephrolithiasis [Unknown]
  - Scapula fracture [Unknown]
  - Tendon calcification [Unknown]
  - Osteoarthritis [Unknown]
  - Hepatitis [Unknown]
  - Kyphosis [Unknown]
  - Emphysema [Unknown]
  - Cardiac failure congestive [Unknown]
  - Phlebitis [Unknown]
  - Tooth loss [Unknown]
  - Metastases to spine [Unknown]
  - Spinal deformity [Unknown]
  - Cachexia [Unknown]
  - Pyogenic granuloma [Unknown]
  - Gingival hyperplasia [Unknown]
